FAERS Safety Report 15112635 (Version 1)
Quarter: 2018Q3

REPORT INFORMATION
  Report Type: Spontaneous
  Country: FR (occurrence: FR)
  Receive Date: 20180705
  Receipt Date: 20180705
  Transmission Date: 20181010
  Serious: Yes (Other)
  Sender: FDA-Public Use
  Company Number: FR-SA-2018SA150039

PATIENT
  Sex: Female

DRUGS (3)
  1. CLOMID [Suspect]
     Active Substance: CLOMIPHENE CITRATE
     Indication: OVULATION INDUCTION
     Dosage: UNK
  2. PROGESTERONE. [Suspect]
     Active Substance: PROGESTERONE
     Indication: MENSTRUAL DISORDER
     Dosage: UNK
  3. METFORMINE MERCK [Suspect]
     Active Substance: METFORMIN HYDROCHLORIDE
     Indication: DIABETES MELLITUS
     Dosage: UNK

REACTIONS (4)
  - Abortion spontaneous [Unknown]
  - Hormone level abnormal [Unknown]
  - Maternal exposure during pregnancy [Unknown]
  - General physical health deterioration [Unknown]
